FAERS Safety Report 18728135 (Version 1)
Quarter: 2021Q1

REPORT INFORMATION
  Report Type: Spontaneous
  Country: US (occurrence: US)
  Receive Date: 20210112
  Receipt Date: 20210112
  Transmission Date: 20210419
  Serious: Yes (Other)
  Sender: FDA-Public Use
  Company Number: US-MICRO LABS LIMITED-ML2021-00076

PATIENT

DRUGS (4)
  1. CIPROFLOXACIN. [Suspect]
     Active Substance: CIPROFLOXACIN
  2. DASATINIB. [Suspect]
     Active Substance: DASATINIB
     Indication: NEOPLASM MALIGNANT
  3. CLINDAMYCIN. [Suspect]
     Active Substance: CLINDAMYCIN
  4. ONDANSETRON [Suspect]
     Active Substance: ONDANSETRON

REACTIONS (1)
  - Ventricular tachycardia [Unknown]
